FAERS Safety Report 5900251-0 (Version None)
Quarter: 2008Q3

REPORT INFORMATION
  Report Type: 
  Country: None (occurrence: None)
  Receive Date: 20080926
  Receipt Date: 20080918
  Transmission Date: 20090109
  Serious: Yes (Other)
  Sender: FDA-Public Use
  Company Number: PHHY2008JP21673

PATIENT
  Age: 49 Year
  Sex: Male

DRUGS (1)
  1. MIKELAN (NVO) [Suspect]
     Dosage: 1 DROP
     Dates: start: 20080512

REACTIONS (1)
  - DEAFNESS [None]
